FAERS Safety Report 17755321 (Version 1)
Quarter: 2020Q2

REPORT INFORMATION
  Report Type: Report from Study
  Country: GB (occurrence: GB)
  Receive Date: 20200507
  Receipt Date: 20200507
  Transmission Date: 20200714
  Serious: Yes (Hospitalization, Other)
  Sender: FDA-Public Use
  Company Number: PHHY2018GB030377

PATIENT
  Age: 63 Year
  Sex: Male
  Weight: 110 kg

DRUGS (1)
  1. OMNITROPE [Suspect]
     Active Substance: SOMATROPIN
     Indication: GROWTH HORMONE DEFICIENCY
     Dosage: 0.1 MG (5 MG/1.5 ML SOLUTION FOR INJECTION), QD
     Route: 058
     Dates: start: 20141024

REACTIONS (8)
  - Urethral stenosis [Unknown]
  - Pituitary tumour benign [Recovering/Resolving]
  - Chest pain [Unknown]
  - Urinary retention [Unknown]
  - Acute myocardial infarction [Recovered/Resolved with Sequelae]
  - Upper respiratory tract infection [Recovered/Resolved]
  - Visual impairment [Unknown]
  - Left ventricular dysfunction [Unknown]

NARRATIVE: CASE EVENT DATE: 20150902
